FAERS Safety Report 4863943-0 (Version None)
Quarter: 2005Q4

REPORT INFORMATION
  Report Type: 
  Country: None (occurrence: None)
  Receive Date: 20051219
  Receipt Date: 20051212
  Transmission Date: 20060501
  Serious: Yes (Death)
  Sender: FDA-Public Use
  Company Number: 2005-135725-NL

PATIENT
  Age: 14 Year
  Sex: Female

DRUGS (7)
  1. ROCURONIUM BROMIDE [Suspect]
  2. PROPOFOL [Suspect]
  3. FENTANYL [Concomitant]
  4. MIDAZOLAM HYDROCHLORIDE [Concomitant]
  5. SUCCINYLCHOLINE CHLORIDE [Concomitant]
  6. HEPARIN [Concomitant]
  7. PROPRANOLOL [Concomitant]

REACTIONS (2)
  - CARDIAC ARREST [None]
  - RESPIRATORY ARREST [None]
